FAERS Safety Report 14401285 (Version 2)
Quarter: 2018Q1

REPORT INFORMATION
  Report Type: Report from Study
  Country: NL (occurrence: NL)
  Receive Date: 20180117
  Receipt Date: 20180205
  Transmission Date: 20180509
  Serious: Yes (Death, Hospitalization, Other)
  Sender: FDA-Public Use
  Company Number: PHHY2018NL004334

PATIENT
  Age: 81 Year
  Sex: Female

DRUGS (1)
  1. ZOMETA [Suspect]
     Active Substance: ZOLEDRONIC ACID
     Indication: BREAST CANCER
     Dosage: 4MG/100ML (ONCE EVERY 26 WEEKS)
     Route: 042
     Dates: start: 20160919

REACTIONS (4)
  - Dehydration [Fatal]
  - Inappropriate schedule of drug administration [Unknown]
  - Pneumonia [Fatal]
  - Dementia [Fatal]

NARRATIVE: CASE EVENT DATE: 20180109
